FAERS Safety Report 25856532 (Version 1)
Quarter: 2025Q3

REPORT INFORMATION
  Report Type: Spontaneous
  Country: JP (occurrence: JP)
  Receive Date: 20250929
  Receipt Date: 20250929
  Transmission Date: 20251020
  Serious: Yes (Hospitalization)
  Sender: MERCK SHARP & DOHME LLC
  Company Number: JP-009507513-2294539

PATIENT
  Age: 84 Year
  Sex: Female
  Weight: 28.7 kg

DRUGS (2)
  1. STROMECTOL [Suspect]
     Active Substance: IVERMECTIN
     Indication: Scabies
     Dosage: 9 MG (3 TABLETS)
     Route: 048
     Dates: start: 20250515, end: 20250521
  2. STROMECTOL [Suspect]
     Active Substance: IVERMECTIN
     Indication: Scabies
     Route: 048
     Dates: start: 20250522, end: 20250630

REACTIONS (18)
  - Eating disorder [Unknown]
  - Overdose [Unknown]
  - Blood creatinine decreased [Unknown]
  - Blood glucose increased [Unknown]
  - Glycosylated haemoglobin increased [Unknown]
  - C-reactive protein increased [Unknown]
  - White blood cell count increased [Unknown]
  - Urobilinogen urine increased [Unknown]
  - Urinary occult blood positive [Unknown]
  - Urine ketone body present [Unknown]
  - Protein urine present [Unknown]
  - Blood albumin decreased [Unknown]
  - Blood lactate dehydrogenase increased [Unknown]
  - Blood creatine phosphokinase decreased [Unknown]
  - Amylase decreased [Unknown]
  - Urine abnormality [Unknown]
  - Squamous cell carcinoma antigen increased [Unknown]
  - Cytokeratin 19 increased [Unknown]

NARRATIVE: CASE EVENT DATE: 20250515
